FAERS Safety Report 19691681 (Version 3)
Quarter: 2021Q3

REPORT INFORMATION
  Report Type: Report from Study
  Country: CA (occurrence: CA)
  Receive Date: 20210812
  Receipt Date: 20210923
  Transmission Date: 20211014
  Serious: Yes (Other)
  Sender: FDA-Public Use
  Company Number: CA-TAKEDA-2021TUS040977

PATIENT
  Age: 60 Year
  Sex: Male

DRUGS (10)
  1. METOPROLOL. [Concomitant]
     Active Substance: METOPROLOL
     Dosage: 25 MILLIGRAM, BID
  2. PANTOPRAZOLE [Concomitant]
     Active Substance: PANTOPRAZOLE
     Dosage: 40 MILLIGRAM, QD
  3. RAMIPRIL. [Concomitant]
     Active Substance: RAMIPRIL
     Dosage: 10 MILLIGRAM
  4. IRON [Concomitant]
     Active Substance: IRON
     Dosage: 300 MILLIGRAM, BID
  5. VEDOLIZUMAB [Suspect]
     Active Substance: VEDOLIZUMAB
     Dosage: 300 MILLIGRAM, Q4WEEKS
     Route: 042
     Dates: start: 20210816
  6. LIPITOR [Concomitant]
     Active Substance: ATORVASTATIN CALCIUM
     Dosage: 80 MILLIGRAM
  7. VEDOLIZUMAB [Suspect]
     Active Substance: VEDOLIZUMAB
     Indication: COLITIS ULCERATIVE
     Dosage: 300 MILLIGRAM
     Route: 042
     Dates: start: 20150922
  8. ASPIRIN. [Concomitant]
     Active Substance: ASPIRIN
     Dosage: 80 MILLIGRAM, QD
  9. CIPRALEX [Concomitant]
     Active Substance: ESCITALOPRAM OXALATE
     Dosage: 10 MILLIGRAM, QD
  10. PREDNISONE. [Concomitant]
     Active Substance: PREDNISONE
     Dosage: UNK

REACTIONS (9)
  - Lethargy [Unknown]
  - Fatigue [Unknown]
  - Off label use [Unknown]
  - Therapeutic reaction time decreased [Unknown]
  - Pyrexia [Unknown]
  - Hyperhidrosis [Unknown]
  - Product dose omission issue [Unknown]
  - Colitis ulcerative [Unknown]
  - Malaise [Unknown]

NARRATIVE: CASE EVENT DATE: 20210816
